FAERS Safety Report 9419690 (Version 1)
Quarter: 2013Q3

REPORT INFORMATION
  Report Type: Spontaneous
  Country: US (occurrence: None)
  Receive Date: 20130723
  Receipt Date: 20130723
  Transmission Date: 20140515
  Serious: Yes (Life-Threatening, Other)
  Sender: FDA-Public Use
  Company Number: None

PATIENT
  Age: 57 Year
  Sex: Male
  Weight: 89.81 kg

DRUGS (1)
  1. DIOVAN [Suspect]
     Indication: HYPERTENSION
     Dosage: SINGLE  DAILY  PO
     Route: 048
     Dates: start: 20130101, end: 20130601

REACTIONS (3)
  - Disturbance in attention [None]
  - Impaired work ability [None]
  - Impaired driving ability [None]
